FAERS Safety Report 4479165-1 (Version None)
Quarter: 2004Q3

REPORT INFORMATION
  Report Type: 
  Country: None (occurrence: None)
  Receive Date: 20040923
  Receipt Date: 20040610
  Transmission Date: 20050211
  Serious: No
  Sender: FDA-Public Use
  Company Number: USA040669018

PATIENT
  Age: 56 Year
  Sex: Male
  Weight: 114 kg

DRUGS (7)
  1. FORTEO [Suspect]
     Indication: OSTEOPOROSIS
     Dates: start: 20040528
  2. ANTIBIOTIC [Concomitant]
  3. ZITHROMAX [Concomitant]
  4. CELEBREX [Concomitant]
  5. GABAPENTIN [Concomitant]
  6. AMBIEN [Concomitant]
  7. TRAZADONE (TRAZODONE) [Concomitant]

REACTIONS (2)
  - ABDOMINAL PAIN UPPER [None]
  - DIARRHOEA [None]
